FAERS Safety Report 12317986 (Version 1)
Quarter: 2016Q2

REPORT INFORMATION
  Report Type: Spontaneous
  Country: US (occurrence: US)
  Receive Date: 20160429
  Receipt Date: 20160429
  Transmission Date: 20160815
  Serious: No
  Sender: FDA-Public Use
  Company Number: US-TEVA-655599USA

PATIENT
  Age: 11 Year
  Sex: Male

DRUGS (1)
  1. QNASL [Suspect]
     Active Substance: BECLOMETHASONE DIPROPIONATE
     Indication: SINUSITIS

REACTIONS (2)
  - Sinus congestion [Unknown]
  - Product use issue [Unknown]

NARRATIVE: CASE EVENT DATE: 201604
